FAERS Safety Report 24967798 (Version 1)
Quarter: 2025Q1

REPORT INFORMATION
  Report Type: Spontaneous
  Country: US (occurrence: US)
  Receive Date: 20250214
  Receipt Date: 20250214
  Transmission Date: 20250408
  Serious: No
  Sender: TAKEDA
  Company Number: US-TAKEDA-2025TUS015607

PATIENT

DRUGS (8)
  1. VYVANSE [Suspect]
     Active Substance: LISDEXAMFETAMINE DIMESYLATE
     Indication: Attention deficit hyperactivity disorder
  2. ADDERALL XR [Suspect]
     Active Substance: AMPHETAMINE ASPARTATE\AMPHETAMINE SULFATE\DEXTROAMPHETAMINE SACCHARATE\DEXTROAMPHETAMINE SULFATE
     Indication: Attention deficit hyperactivity disorder
  3. RITALIN [Suspect]
     Active Substance: METHYLPHENIDATE HYDROCHLORIDE
     Indication: Attention deficit hyperactivity disorder
  4. DEXEDRINE [Suspect]
     Active Substance: DEXTROAMPHETAMINE SULFATE
     Indication: Attention deficit hyperactivity disorder
  5. EVEKEO [Suspect]
     Active Substance: AMPHETAMINE SULFATE
     Indication: Attention deficit hyperactivity disorder
  6. VITAMIN C [Concomitant]
     Active Substance: ASCORBIC ACID
  7. CRANBERRY JUICE [Concomitant]
     Active Substance: CRANBERRY JUICE
  8. METHIONINE [Concomitant]
     Active Substance: METHIONINE

REACTIONS (6)
  - Metabolic disorder [Unknown]
  - Therapeutic response shortened [Unknown]
  - Heart rate decreased [Unknown]
  - Hypersomnia [Unknown]
  - Insomnia [Unknown]
  - Anxiety [Unknown]
